FAERS Safety Report 7005614 (Version 7)
Quarter: 2013Q3

REPORT INFORMATION
  Report Type: Spontaneous
  Country: US (occurrence: US)
  Receive Date: 20090528
  Receipt Date: 20130821
  Transmission Date: 20140515
  Serious: Yes (Other)
  Sender: FDA-Public Use
  Company Number: US-BIOGENIDEC-2009BI015077

PATIENT
  Age: 44 Year
  Sex: Female

DRUGS (1)
  1. TYSABRI [Suspect]
     Indication: MULTIPLE SCLEROSIS
     Route: 042
     Dates: start: 20070604, end: 20090414

REACTIONS (5)
  - Adenoma benign [Unknown]
  - Lyme disease [Not Recovered/Not Resolved]
  - Invasive ductal breast carcinoma [Unknown]
  - Intraductal proliferative breast lesion [Not Recovered/Not Resolved]
  - Feeling abnormal [Recovered/Resolved]
